FAERS Safety Report 23637798 (Version 1)
Quarter: 2024Q1

REPORT INFORMATION
  Report Type: Report from Study
  Country: FR (occurrence: FR)
  Receive Date: 20240315
  Receipt Date: 20240315
  Transmission Date: 20240409
  Serious: Yes (Death, Life-Threatening, Hospitalization, Other)
  Sender: FDA-Public Use
  Company Number: FR-JNJFOC-20240319576

PATIENT

DRUGS (3)
  1. TECVAYLI [Suspect]
     Active Substance: TECLISTAMAB-CQYV
     Indication: Plasma cell myeloma
     Route: 065
  2. TALVEY [Suspect]
     Active Substance: TALQUETAMAB-TGVS
     Indication: Plasma cell myeloma
     Route: 065
  3. ELRANATAMAB [Suspect]
     Active Substance: ELRANATAMAB
     Indication: Plasma cell myeloma
     Route: 065

REACTIONS (39)
  - Infection [Fatal]
  - Cytokine release syndrome [Unknown]
  - Immune effector cell-associated neurotoxicity syndrome [Unknown]
  - Neutropenia [Unknown]
  - Upper respiratory tract infection [Unknown]
  - Lower respiratory tract infection [Unknown]
  - Gastrointestinal infection [Unknown]
  - Genitourinary tract infection [Unknown]
  - Skin infection [Unknown]
  - Soft tissue infection [Unknown]
  - Central nervous system infection [Unknown]
  - Enterobacter infection [Unknown]
  - Pseudomonas infection [Unknown]
  - Bacterial infection [Unknown]
  - Bacterial infection [Unknown]
  - Enterococcal infection [Unknown]
  - Staphylococcal infection [Unknown]
  - Pneumonia pneumococcal [Unknown]
  - Haemophilus infection [Unknown]
  - Neisseria infection [Unknown]
  - COVID-19 [Unknown]
  - Rhinovirus infection [Unknown]
  - Respiratory syncytial virus infection [Unknown]
  - Metapneumovirus infection [Unknown]
  - Cytomegalovirus infection [Unknown]
  - Enterovirus infection [Unknown]
  - Herpes simplex [Unknown]
  - Varicella zoster virus infection [Unknown]
  - Parvovirus B19 infection [Unknown]
  - Hepatitis B [Unknown]
  - Sapovirus infection [Unknown]
  - Adenovirus infection [Unknown]
  - Aspergillus infection [Unknown]
  - Scedosporium infection [Unknown]
  - Pneumocystis jirovecii infection [Unknown]
  - Toxoplasmosis [Unknown]
  - Giardiasis [Unknown]
  - Influenza [Unknown]
  - JC virus infection [Unknown]
